FAERS Safety Report 4815238-9 (Version None)
Quarter: 2005Q4

REPORT INFORMATION
  Report Type: 
  Country: None (occurrence: None)
  Receive Date: 20051028
  Receipt Date: 20051019
  Transmission Date: 20060501
  Serious: Yes (Hospitalization)
  Sender: FDA-Public Use
  Company Number: US-MERCK-0510USA09026

PATIENT
  Age: 74 Year
  Sex: Female

DRUGS (1)
  1. VIOXX [Suspect]
     Route: 048
     Dates: end: 20040901

REACTIONS (3)
  - CARDIAC DISORDER [None]
  - CARDIAC OPERATION [None]
  - CEREBROVASCULAR ACCIDENT [None]
